FAERS Safety Report 11389163 (Version 4)
Quarter: 2016Q1

REPORT INFORMATION
  Report Type: Spontaneous
  Country: US (occurrence: US)
  Receive Date: 20150817
  Receipt Date: 20160118
  Transmission Date: 20160525
  Serious: Yes (Other)
  Sender: FDA-Public Use
  Company Number: PHEH2015US015911

PATIENT
  Sex: Female

DRUGS (2)
  1. VIMPAT [Suspect]
     Active Substance: LACOSAMIDE
     Indication: PRODUCT USED FOR UNKNOWN INDICATION
     Route: 065
  2. TEGRETOL [Suspect]
     Active Substance: CARBAMAZEPINE
     Indication: PRODUCT USED FOR UNKNOWN INDICATION
     Route: 065

REACTIONS (10)
  - Seizure [Unknown]
  - Haematemesis [Unknown]
  - Feeling abnormal [Unknown]
  - Insomnia [Unknown]
  - Dyspepsia [Unknown]
  - Stress [Unknown]
  - Headache [Unknown]
  - Malaise [Unknown]
  - Hunger [Unknown]
  - Dizziness [Unknown]
